FAERS Safety Report 19989985 (Version 2)
Quarter: 2021Q4

REPORT INFORMATION
  Report Type: Other
  Country: US (occurrence: US)
  Receive Date: 20211025
  Receipt Date: 20211027
  Transmission Date: 20220304
  Serious: No
  Sender: FDA-Public Use
  Company Number: US-ROCHE-2939936

PATIENT
  Age: 59 Year
  Sex: Female
  Weight: 122.58 kg

DRUGS (3)
  1. OCREVUS [Suspect]
     Active Substance: OCRELIZUMAB
     Indication: Relapsing multiple sclerosis
     Dosage: DATE OF TREATMENT: 09/JUL/2020
     Route: 042
  2. MODERNA COVID-19 VACCINE [Concomitant]
     Active Substance: CX-024414
     Dates: start: 202101
  3. MODERNA COVID-19 VACCINE [Concomitant]
     Active Substance: CX-024414
     Dates: start: 202102

REACTIONS (1)
  - COVID-19 [Recovered/Resolved]

NARRATIVE: CASE EVENT DATE: 20210826
